FAERS Safety Report 5323666-0 (Version None)
Quarter: 2007Q2

REPORT INFORMATION
  Report Type: 
  Country: None (occurrence: None)
  Receive Date: 20070510
  Receipt Date: 20070510
  Transmission Date: 20071010
  Serious: Yes (Hospitalization)
  Sender: FDA-Public Use
  Company Number: None

PATIENT
  Age: 73 Year
  Sex: Male
  Weight: 91.3 kg

DRUGS (39)
  1. AMOXICILLIN + CLAVULANATE POTASSIUM [Suspect]
     Indication: OTITIS EXTERNA
     Dosage: 875 MG PO BID
     Route: 048
     Dates: start: 20070115, end: 20070124
  2. ACETAMINOPHEN [Concomitant]
  3. ALBUTEROL [Concomitant]
  4. AMOXICILLIN [Concomitant]
  5. ASPIRIN [Concomitant]
  6. BECLOMETHASONE DIPROPIONATE [Concomitant]
  7. CARBAMIDE PEROXIDE [Concomitant]
  8. CEFUROXIME AXETIL [Concomitant]
  9. CIPROFLOXACIN HCL [Concomitant]
  10. CLOTRIMAZOLE [Concomitant]
  11. CODEINE PHOSPHATE AND ACETAMINOPHEN [Concomitant]
  12. CYCLOBENZAPRINE HCL [Concomitant]
  13. DM / GUAIFENESN [Concomitant]
  14. ETODOLAC [Concomitant]
  15. FAMOTIDINE [Concomitant]
  16. FERROUS SO4 [Concomitant]
  17. FERROUS SULFATE TAB [Concomitant]
  18. FLUOROURACIL [Concomitant]
  19. HC / NEOMYCIN / POLYMXIN [Concomitant]
  20. HEMORRHOIDAL/HC [Concomitant]
  21. HEPATITIS A VACCINE [Concomitant]
  22. ACETAMINOPHEN AND HYDROCODONE BITARTRATE [Concomitant]
  23. HYDROCODONE / HOMATROPINE [Concomitant]
  24. IPRATROPIUM BROMIDE [Concomitant]
  25. LACTULOSE [Concomitant]
  26. SYNTHROID [Concomitant]
  27. METOCLOPRAMIDE HCL [Concomitant]
  28. PEG ELECTROLYTE FOR GI LAVAGE [Concomitant]
  29. PREDNISONE TAB [Concomitant]
  30. PSEUDOEPHEDRINE HCL [Concomitant]
  31. RANITIDINE HCL [Concomitant]
  32. SENNOSIDES [Concomitant]
  33. SODIUM PHOSPHATE (COMB) ENEMA [Concomitant]
  34. SPACER FOR MDI [Concomitant]
  35. SPIRONOLACTONE [Concomitant]
  36. SULFAMETHOXAZOLE + TRIMETHOPRIM [Concomitant]
  37. SULFASALAZINE [Concomitant]
  38. TRIAMCINOLONE ACETONIDE [Concomitant]
  39. ZZZERYTHROMYCIN STEARATE [Concomitant]

REACTIONS (3)
  - ABDOMINAL PAIN UPPER [None]
  - JAUNDICE [None]
  - LIVER FUNCTION TEST ABNORMAL [None]
